FAERS Safety Report 11929736 (Version 1)
Quarter: 2016Q1

REPORT INFORMATION
  Report Type: Spontaneous
  Country: US (occurrence: None)
  Receive Date: 20160119
  Receipt Date: 20160119
  Transmission Date: 20160526
  Serious: Yes (Disabling, Other)
  Sender: FDA-Public Use
  Company Number: None

PATIENT
  Age: 43 Year
  Sex: Male
  Weight: 92.99 kg

DRUGS (5)
  1. REMICADE [Suspect]
     Active Substance: INFLIXIMAB
     Indication: ANKYLOSING SPONDYLITIS
     Route: 042
  2. MULIT-VITAMIN [Concomitant]
  3. OXCODONE [Concomitant]
  4. IBUEPROFEN [Concomitant]
  5. OMEPRAZOLE. [Concomitant]
     Active Substance: OMEPRAZOLE

REACTIONS (8)
  - Dizziness [None]
  - Weight decreased [None]
  - Night sweats [None]
  - Visual impairment [None]
  - Speech disorder [None]
  - Nausea [None]
  - Memory impairment [None]
  - Infusion related reaction [None]

NARRATIVE: CASE EVENT DATE: 20150414
